FAERS Safety Report 13129654 (Version 2)
Quarter: 2017Q1

REPORT INFORMATION
  Report Type: Spontaneous
  Country: US (occurrence: US)
  Receive Date: 20170119
  Receipt Date: 20170221
  Transmission Date: 20170428
  Serious: No
  Sender: FDA-Public Use
  Company Number: US-ASTRAZENECA-2012BM12783

PATIENT
  Age: 27857 Day
  Sex: Female
  Weight: 72.6 kg

DRUGS (4)
  1. METFORMIN [Concomitant]
     Active Substance: METFORMIN HYDROCHLORIDE
     Indication: TYPE 2 DIABETES MELLITUS
     Route: 048
  2. BYDUREON [Suspect]
     Active Substance: EXENATIDE
     Indication: TYPE 2 DIABETES MELLITUS
     Route: 058
     Dates: start: 20140821
  3. BYETTA [Suspect]
     Active Substance: EXENATIDE
     Indication: TYPE 2 DIABETES MELLITUS
     Route: 058
  4. BYETTA [Suspect]
     Active Substance: EXENATIDE
     Indication: TYPE 2 DIABETES MELLITUS
     Route: 058

REACTIONS (6)
  - Nausea [Recovered/Resolved]
  - Nasopharyngitis [Not Recovered/Not Resolved]
  - Device issue [Unknown]
  - Weight decreased [Recovered/Resolved]
  - Dizziness [Recovered/Resolved]
  - Injection site mass [Unknown]

NARRATIVE: CASE EVENT DATE: 20170109
